FAERS Safety Report 6439274-4 (Version None)
Quarter: 2009Q4

REPORT INFORMATION
  Report Type: 
  Country: None (occurrence: None)
  Receive Date: 20091113
  Receipt Date: 20091103
  Transmission Date: 20100525
  Serious: Yes (Hospitalization, Other)
  Sender: FDA-Public Use
  Company Number: NL-SANOFI-AVENTIS-2009SA000700

PATIENT
  Age: 61 Year
  Sex: Male
  Weight: 95 kg

DRUGS (8)
  1. LANTUS [Suspect]
     Dates: start: 20050930, end: 20090915
  2. METFORMIN HCL [Concomitant]
     Dates: start: 20010418
  3. NOVORAPID [Concomitant]
     Dates: start: 20030404
  4. CLOPIDOGREL [Concomitant]
     Dates: start: 20071130
  5. AMLODIPINE [Concomitant]
     Dates: start: 20070117
  6. BISOPROLOL FUMARATE [Concomitant]
     Dates: start: 20060314
  7. DIOVAN HCT [Concomitant]
     Dosage: 80 / 12.5 MG
     Dates: start: 20070214
  8. LIPITOR [Concomitant]
     Dates: start: 20050521

REACTIONS (1)
  - GASTROINTESTINAL CARCINOMA [None]
